FAERS Safety Report 10221808 (Version 1)
Quarter: 2014Q2

REPORT INFORMATION
  Report Type: Spontaneous
  Country: CO (occurrence: CO)
  Receive Date: 20140606
  Receipt Date: 20140606
  Transmission Date: 20141212
  Serious: Yes (Other)
  Sender: FDA-Public Use
  Company Number: CO-BIOMARINAP-CO-2013-101296

PATIENT
  Sex: Male
  Weight: 18 kg

DRUGS (1)
  1. NAGLAZYME [Suspect]
     Indication: MUCOPOLYSACCHARIDOSIS VI
     Dosage: 20 MG, QW
     Route: 041
     Dates: start: 200702

REACTIONS (3)
  - Apnoea [Unknown]
  - Dyspnoea [Unknown]
  - Cyanosis [Unknown]
